FAERS Safety Report 8541695-0 (Version None)
Quarter: 2012Q3

REPORT INFORMATION
  Report Type: 
  Country: None (occurrence: None)
  Receive Date: 20120726
  Receipt Date: 20120123
  Transmission Date: 20120928
  Serious: Yes (Other)
  Sender: FDA-Public Use
  Company Number: CHPA2012US012926

PATIENT
  Age: 77 Year
  Sex: Female

DRUGS (1)
  1. EXCEDRIN EXTRA STRENGTH TABLETS [Suspect]
     Indication: SCIATICA
     Dosage: 1-4 TABLETS A DAY, PRN, FOR 20 YEARS
     Route: 048

REACTIONS (7)
  - REBOUND EFFECT [None]
  - HEADACHE [None]
  - THERAPEUTIC RESPONSE DECREASED [None]
  - OFF LABEL USE [None]
  - UNDERDOSE [None]
  - DRUG DEPENDENCE [None]
  - WITHDRAWAL SYNDROME [None]
